FAERS Safety Report 25216098 (Version 1)
Quarter: 2025Q2

REPORT INFORMATION
  Report Type: Spontaneous
  Country: US (occurrence: US)
  Receive Date: 20250418
  Receipt Date: 20250418
  Transmission Date: 20250716
  Serious: No
  Sender: ROCHE
  Company Number: US-ROCHE-10000255446

PATIENT
  Sex: Female

DRUGS (1)
  1. ACTEMRA [Suspect]
     Active Substance: TOCILIZUMAB
     Indication: Psoriatic arthropathy
     Dosage: STRENGTH: 80 MG/4ML
     Route: 042
     Dates: start: 202501

REACTIONS (6)
  - Tremor [Unknown]
  - Dizziness [Unknown]
  - Pain [Unknown]
  - Chills [Unknown]
  - Drug hypersensitivity [Unknown]
  - Off label use [Unknown]
